FAERS Safety Report 8908574 (Version 1)
Quarter: 2012Q4

REPORT INFORMATION
  Report Type: 
  Country: GB (occurrence: GB)
  Receive Date: 20121114
  Receipt Date: 20121114
  Transmission Date: 20130627
  Serious: Yes (Hospitalization)
  Sender: FDA-Public Use
  Company Number: GB-TEVA-368018ISR

PATIENT
  Age: 53 Year
  Sex: Female

DRUGS (8)
  1. MIRTAZAPINE [Suspect]
     Route: 048
  2. METHOTREXATE [Concomitant]
  3. THYROXINE [Concomitant]
  4. OMEPRAZOLE [Concomitant]
  5. ATORVASTATIN [Concomitant]
  6. CLOPIDOGREL [Concomitant]
  7. FOLIC ACID [Concomitant]
  8. PARACETAMOL [Concomitant]

REACTIONS (2)
  - Neutropenia [Recovering/Resolving]
  - Sepsis [Unknown]
